FAERS Safety Report 21646884 (Version 1)
Quarter: 2022Q4

REPORT INFORMATION
  Report Type: Spontaneous
  Country: JP (occurrence: JP)
  Receive Date: 20221127
  Receipt Date: 20221127
  Transmission Date: 20230112
  Serious: Yes (Other)
  Sender: FDA-Public Use
  Company Number: JP-SYMBIO-202200424

PATIENT
  Age: 56 Year
  Sex: Male
  Weight: 69 kg

DRUGS (6)
  1. BENDAMUSTINE HYDROCHLORIDE [Suspect]
     Active Substance: BENDAMUSTINE HYDROCHLORIDE
     Indication: Diffuse large B-cell lymphoma recurrent
     Dosage: 120 MG/M2 DAILY;
     Route: 041
     Dates: start: 20220826, end: 20220827
  2. BENDAMUSTINE HYDROCHLORIDE [Suspect]
     Active Substance: BENDAMUSTINE HYDROCHLORIDE
     Indication: Diffuse large B-cell lymphoma refractory
     Dosage: 120 MG/M2 DAILY;
     Route: 041
     Dates: start: 20220727, end: 20220728
  3. RITUXAN [Suspect]
     Active Substance: RITUXIMAB
     Indication: Diffuse large B-cell lymphoma recurrent
     Route: 065
     Dates: start: 20220726
  4. RITUXAN [Suspect]
     Active Substance: RITUXIMAB
     Indication: Diffuse large B-cell lymphoma refractory
     Dosage: 375 MG/M2 DAILY;  CYCLIC)
     Route: 041
     Dates: start: 20220726, end: 20220726
  5. RITUXAN [Suspect]
     Active Substance: RITUXIMAB
     Dosage: 375 MG/M2 DAILY; (CYCLIC)
     Route: 041
     Dates: start: 20220825, end: 20220825
  6. VALGANCICLOVIR [Concomitant]
     Active Substance: VALGANCICLOVIR
     Indication: Product used for unknown indication
     Route: 065

REACTIONS (3)
  - Cytomegalovirus viraemia [Recovering/Resolving]
  - CD4 lymphocytes decreased [Recovering/Resolving]
  - Off label use [Unknown]

NARRATIVE: CASE EVENT DATE: 20220909
